FAERS Safety Report 5741178-7 (Version None)
Quarter: 2008Q2

REPORT INFORMATION
  Report Type: 
  Country: None (occurrence: None)
  Receive Date: 20080514
  Receipt Date: 20080429
  Transmission Date: 20081010
  Serious: Yes (Death, Hospitalization)
  Sender: FDA-Public Use
  Company Number: LRX-000020

PATIENT
  Age: 68 Year
  Sex: Female
  Weight: 41.5 kg

DRUGS (12)
  1. TREPROSTINIL SODIUM (INHALED)(5 MICROGRAM, SUSPENSION)(TREPROSTINIL SO [Suspect]
     Indication: PULMONARY ARTERIAL HYPERTENSION
     Dosage: 180 MCG (45 MCG,4 IN 1 D),INHALATION
     Route: 055
     Dates: start: 20070329, end: 20070723
  2. LEXAPRO [Concomitant]
  3. LASIX [Concomitant]
  4. SOTALOL HCL [Concomitant]
  5. SALAGEN [Concomitant]
  6. SYNTHROID [Concomitant]
  7. COUMADIN [Concomitant]
  8. REVATIO (SILDENAFIL CITRATE) [Concomitant]
  9. MULTIVITAMIN (MULTIVITAMIN/00831701/) [Concomitant]
  10. ASCORBIC ACID [Concomitant]
  11. PREDNISONE TAB [Concomitant]
  12. BONIVA [Concomitant]

REACTIONS (19)
  - ACUTE RESPIRATORY FAILURE [None]
  - ANAEMIA [None]
  - ANOXIC ENCEPHALOPATHY [None]
  - CARDIAC FAILURE CONGESTIVE [None]
  - CARDIO-RESPIRATORY ARREST [None]
  - CREST SYNDROME [None]
  - DIARRHOEA [None]
  - HAEMATEMESIS [None]
  - HYPOXIA [None]
  - MYOCLONUS [None]
  - OEDEMA PERIPHERAL [None]
  - OESOPHAGEAL RUPTURE [None]
  - PNEUMONIA [None]
  - PNEUMOTHORAX [None]
  - PULMONARY HAEMORRHAGE [None]
  - RENAL FAILURE [None]
  - SEPSIS [None]
  - STREPTOCOCCAL BACTERAEMIA [None]
  - WEIGHT INCREASED [None]
